FAERS Safety Report 19255010 (Version 1)
Quarter: 2021Q2

REPORT INFORMATION
  Report Type: Spontaneous
  Country: SE (occurrence: SE)
  Receive Date: 20210513
  Receipt Date: 20210513
  Transmission Date: 20210717
  Serious: Yes (Other)
  Sender: FDA-Public Use
  Company Number: SE-PFIZER INC-2021492062

PATIENT
  Age: 9 Year
  Sex: Male

DRUGS (8)
  1. TOLTERODINE TARTRATE. [Suspect]
     Active Substance: TOLTERODINE TARTRATE
     Indication: ENURESIS
     Dosage: 2 MG, DAILY
     Dates: start: 20210126
  2. AVAMYS [Concomitant]
     Active Substance: FLUTICASONE FUROATE
     Dosage: 2 DF, DAILY
     Dates: start: 20200429
  3. AERIUS (DESLORATADINE) [Concomitant]
     Active Substance: DESLORATADINE
     Dosage: 5 MG, DAILY
     Route: 048
     Dates: start: 20200710
  4. OPATANOL [Concomitant]
     Active Substance: OLOPATADINE
     Dosage: 1 DROPPE 2 GGR/D
     Dates: start: 20200429
  5. EMERADE [Concomitant]
     Active Substance: EPINEPHRINE BITARTRATE
     Dosage: 1 DF, AS NEEDED
     Route: 030
     Dates: start: 20191022
  6. BETAPRED [Concomitant]
     Active Substance: BETAMETHASONE SODIUM PHOSPHATE
     Dosage: 10 TABLETS AS NEEDED
     Route: 048
     Dates: start: 20191211
  7. FORLAX [Concomitant]
     Active Substance: POLYETHYLENE GLYCOL 4000
     Dosage: 10 G, DAILY
     Route: 048
     Dates: start: 20200928
  8. MINIDERM [GLYCEROL] [Concomitant]
     Dosage: 1 DF, DAILY
     Dates: start: 20200429

REACTIONS (7)
  - Nausea [Unknown]
  - Off label use [Unknown]
  - Diplopia [Unknown]
  - Lethargy [Unknown]
  - Somnolence [Unknown]
  - Confusional state [Unknown]
  - Hallucination, visual [Unknown]

NARRATIVE: CASE EVENT DATE: 20210126
